FAERS Safety Report 8809423 (Version 1)
Quarter: 2012Q4

REPORT INFORMATION
  Report Type: 
  Country: PK (occurrence: PK)
  Receive Date: 20120926
  Receipt Date: 20120926
  Transmission Date: 20130627
  Serious: Yes (Other)
  Sender: FDA-Public Use
  Company Number: PHHY2012PK081976

PATIENT
  Age: 12 Year
  Sex: Male

DRUGS (1)
  1. VOLTRAL [Suspect]
     Indication: CIRCUMCISION
     Route: 030

REACTIONS (2)
  - Shock [Recovered/Resolved]
  - Pulse absent [Unknown]
